FAERS Safety Report 24284039 (Version 14)
Quarter: 2025Q1

REPORT INFORMATION
  Report Type: Spontaneous
  Country: US (occurrence: US)
  Receive Date: 20240905
  Receipt Date: 20250206
  Transmission Date: 20250409
  Serious: No
  Sender: UNITED THERAPEUTICS
  Company Number: US-UNITED THERAPEUTICS-UNT-2024-027053

PATIENT
  Sex: Female
  Weight: 67.12 kg

DRUGS (19)
  1. TYVASO [Suspect]
     Active Substance: TREPROSTINIL
     Indication: Pulmonary arterial hypertension
     Dosage: 18 ?G, QID
     Dates: start: 2024, end: 2024
  2. TYVASO [Suspect]
     Active Substance: TREPROSTINIL
     Dosage: 72 ?G, QID
     Dates: start: 2024, end: 2024
  3. TYVASO [Suspect]
     Active Substance: TREPROSTINIL
     Dosage: 18 ?G, QID
     Dates: start: 2024
  4. TYVASO [Suspect]
     Active Substance: TREPROSTINIL
     Dates: start: 20240819, end: 20250124
  5. OPSUMIT [Suspect]
     Active Substance: MACITENTAN
     Indication: Product used for unknown indication
  6. FUROSEMIDE [Concomitant]
     Active Substance: FUROSEMIDE
     Indication: Product used for unknown indication
  7. FISH OIL [Concomitant]
     Active Substance: FISH OIL
     Indication: Product used for unknown indication
  8. POTASSIUM CHLORIDE [Concomitant]
     Active Substance: POTASSIUM CHLORIDE
     Indication: Product used for unknown indication
  9. VITAMIN D3 [Concomitant]
     Active Substance: CHOLECALCIFEROL
     Indication: Product used for unknown indication
  10. ALBUTEROL SULFATE [Concomitant]
     Active Substance: ALBUTEROL SULFATE
     Indication: Product used for unknown indication
  11. HYDROCHLOROTHIAZIDE\TRIAMTERENE [Concomitant]
     Active Substance: HYDROCHLOROTHIAZIDE\TRIAMTERENE
     Indication: Product used for unknown indication
  12. B12 ACTIVE [Concomitant]
     Indication: Product used for unknown indication
  13. VITAMIN E [Concomitant]
     Active Substance: .ALPHA.-TOCOPHEROL
     Indication: Product used for unknown indication
  14. VITAMIN C [Concomitant]
     Active Substance: ASCORBIC ACID
     Indication: Product used for unknown indication
  15. CALCIUM [Concomitant]
     Active Substance: CALCIUM
     Indication: Product used for unknown indication
  16. MAGNESIUM [Concomitant]
     Active Substance: MAGNESIUM
     Indication: Product used for unknown indication
  17. MUCINEX [Concomitant]
     Active Substance: GUAIFENESIN
     Indication: Product used for unknown indication
  18. TEA [Concomitant]
     Active Substance: TEA LEAF
     Indication: Product used for unknown indication
  19. OXYGEN [Concomitant]
     Active Substance: OXYGEN
     Indication: Product used for unknown indication

REACTIONS (27)
  - Cough [Unknown]
  - Dizziness postural [Recovered/Resolved]
  - Feeling abnormal [Unknown]
  - Blood pressure increased [Recovered/Resolved]
  - Throat clearing [Unknown]
  - Choking sensation [Unknown]
  - Retching [Unknown]
  - Productive cough [Not Recovered/Not Resolved]
  - Oropharyngeal pain [Unknown]
  - Oropharyngeal discomfort [Unknown]
  - Secretion discharge [Unknown]
  - Chest pain [Unknown]
  - Headache [Unknown]
  - Drug tolerance decreased [Unknown]
  - Peripheral swelling [Unknown]
  - Nasal congestion [Unknown]
  - Ligament sprain [Unknown]
  - Sputum discoloured [Unknown]
  - Insomnia [Unknown]
  - Dyspnoea [Unknown]
  - Wheezing [Unknown]
  - Rales [Unknown]
  - Therapy non-responder [Unknown]
  - Wrong technique in product usage process [Unknown]
  - Treatment noncompliance [Unknown]
  - Product distribution issue [Unknown]
  - Patient dissatisfaction with treatment [Unknown]

NARRATIVE: CASE EVENT DATE: 20240101
